FAERS Safety Report 23657438 (Version 1)
Quarter: 2024Q1

REPORT INFORMATION
  Report Type: Other
  Country: JP (occurrence: JP)
  Receive Date: 20240321
  Receipt Date: 20240321
  Transmission Date: 20240409
  Serious: Yes (Hospitalization, Other)
  Sender: FDA-Public Use
  Company Number: JP-ROCHE-3528777

PATIENT
  Age: 72 Year
  Sex: Male

DRUGS (6)
  1. BEVACIZUMAB [Suspect]
     Active Substance: BEVACIZUMAB
     Indication: Colon cancer stage III
     Dosage: 8 COURSES OF ADJUVANT CHEMOTHERAPY, LATER FOLFIRI + BV 49 COURSES
     Route: 065
  2. CAPECITABINE [Suspect]
     Active Substance: CAPECITABINE
     Indication: Colon cancer stage III
     Dosage: 8 COURSES OF POSTOPERATIVE ADJUVANT CHEMOTHERAPY
     Route: 065
  3. OXALIPLATIN [Suspect]
     Active Substance: OXALIPLATIN
     Indication: Colon cancer stage III
     Dosage: 8 COURSES OF POSTOPERATIVE ADJUVANT CHEMOTHERAPY
     Route: 065
  4. LEUCOVORIN [Suspect]
     Active Substance: LEUCOVORIN\LEUCOVORIN CALCIUM
     Indication: Colon cancer stage III
     Dosage: FOLFIRI + BV 49 COURSES
     Route: 065
  5. FLUOROURACIL [Suspect]
     Active Substance: FLUOROURACIL
     Indication: Colon cancer stage III
     Dosage: FOLFIRI + BV 49 COURSES
     Route: 065
  6. IRINOTECAN [Suspect]
     Active Substance: IRINOTECAN
     Indication: Colon cancer stage III
     Dosage: FOLFIRI + BV 49 COURSES
     Route: 065

REACTIONS (3)
  - Arthritis bacterial [Unknown]
  - Metastases to peritoneum [Recovered/Resolved]
  - Vascular device infection [Unknown]
